FAERS Safety Report 9414420 (Version 3)
Quarter: 2013Q4

REPORT INFORMATION
  Report Type: Spontaneous
  Country: BR (occurrence: BR)
  Receive Date: 20130723
  Receipt Date: 20131206
  Transmission Date: 20140711
  Serious: Yes (Hospitalization, Other)
  Sender: FDA-Public Use
  Company Number: BR-ROCHE-1250149

PATIENT
  Sex: Female
  Weight: 55 kg

DRUGS (3)
  1. RIVOTRIL [Suspect]
     Indication: SLEEP DISORDER THERAPY
     Route: 065
     Dates: end: 1989
  2. RIVOTRIL [Suspect]
     Route: 065
     Dates: start: 1999
  3. SERTRALINE [Concomitant]

REACTIONS (12)
  - Neoplasm malignant [Not Recovered/Not Resolved]
  - Neoplasm [Not Recovered/Not Resolved]
  - Intervertebral disc protrusion [Not Recovered/Not Resolved]
  - Cervix neoplasm [Recovered/Resolved]
  - Cerebrovascular accident [Recovered/Resolved]
  - Bone marrow disorder [Not Recovered/Not Resolved]
  - Neoplasm [Recovered/Resolved]
  - Neoplasm [Recovered/Resolved]
  - Chondrosarcoma [Not Recovered/Not Resolved]
  - Bone disorder [Unknown]
  - Panic disorder [Unknown]
  - Drug dependence [Not Recovered/Not Resolved]
